FAERS Safety Report 4667987-3 (Version None)
Quarter: 2005Q2

REPORT INFORMATION
  Report Type: 
  Country: None (occurrence: None)
  Receive Date: 20050519
  Receipt Date: 20050422
  Transmission Date: 20051028
  Serious: Yes (Hospitalization)
  Sender: FDA-Public Use
  Company Number: PAR_0041_2005

PATIENT
  Age: 72 Year
  Sex: Female

DRUGS (7)
  1. ISOPTIN [Suspect]
     Dosage: 120 MG PO
     Route: 048
     Dates: start: 20050318, end: 20050323
  2. FLECAINIDE ACETATE [Suspect]
     Dosage: 2 TAB QDAY PO
     Route: 048
     Dates: start: 20050323, end: 20050324
  3. FLECAINIDE ACETATE [Suspect]
     Dosage: 3 TAB QDAY PO
     Route: 048
     Dates: end: 20050323
  4. FLECAINIDE ACETATE [Suspect]
     Dosage: 2 TAB QDAY PO
     Route: 048
  5. FLUINDIONE [Concomitant]
  6. LEVOTHYROXINE SODIUM [Concomitant]
  7. PRAVASTATIN [Concomitant]

REACTIONS (3)
  - ELECTROCARDIOGRAM QT PROLONGED [None]
  - SYNCOPE [None]
  - TORSADE DE POINTES [None]
